FAERS Safety Report 4956106-1 (Version None)
Quarter: 2006Q1

REPORT INFORMATION
  Report Type: 
  Country: None (occurrence: None)
  Receive Date: 20060328
  Receipt Date: 20050816
  Transmission Date: 20060701
  Serious: Yes (Hospitalization)
  Sender: FDA-Public Use
  Company Number: US-MERCK-0508USA03050

PATIENT
  Age: 64 Year
  Sex: Male
  Weight: 111 kg

DRUGS (10)
  1. VIOXX [Suspect]
     Indication: ARTHRITIS
     Route: 048
     Dates: start: 20000511, end: 20040930
  2. VIOXX [Suspect]
     Indication: NEUROPATHY PERIPHERAL
     Route: 048
     Dates: start: 20000511, end: 20040930
  3. ZOCOR [Concomitant]
     Route: 048
  4. LASIX [Concomitant]
     Route: 048
  5. ASPIRIN [Concomitant]
     Route: 048
  6. VASOTEC RPD [Concomitant]
     Route: 048
  7. GLUCOPHAGE [Concomitant]
     Route: 048
  8. TENORMIN [Concomitant]
     Route: 048
  9. PLAVIX [Concomitant]
     Route: 048
  10. INSULIN, BIPHASIC ISOPHANE [INJECTION] [Concomitant]
     Route: 051

REACTIONS (39)
  - ANGINA UNSTABLE [None]
  - ASTHMA [None]
  - ATRIOVENTRICULAR BLOCK FIRST DEGREE [None]
  - BACK DISORDER [None]
  - BLOOD ALBUMIN DECREASED [None]
  - BLOOD PRESSURE DECREASED [None]
  - BLOOD UREA INCREASED [None]
  - BRONCHITIS [None]
  - CERUMEN IMPACTION [None]
  - CHEST DISCOMFORT [None]
  - CHEST PAIN [None]
  - CHRONIC OBSTRUCTIVE PULMONARY DISEASE [None]
  - CORONARY ARTERY DISEASE [None]
  - CORONARY ARTERY OCCLUSION [None]
  - CORONARY ARTERY STENOSIS [None]
  - DIABETES MELLITUS INADEQUATE CONTROL [None]
  - ELECTROCARDIOGRAM ST SEGMENT DEPRESSION [None]
  - ERECTILE DYSFUNCTION [None]
  - FOLLICULITIS [None]
  - GASTROOESOPHAGEAL REFLUX DISEASE [None]
  - GLOBULINS DECREASED [None]
  - HYPERTENSION [None]
  - HYPOCALCAEMIA [None]
  - HYPOTHYROIDISM [None]
  - JOINT INJURY [None]
  - MITRAL VALVE INCOMPETENCE [None]
  - MYALGIA [None]
  - NORMOCHROMIC NORMOCYTIC ANAEMIA [None]
  - OEDEMA PERIPHERAL [None]
  - OTORRHOEA [None]
  - PERIODIC LIMB MOVEMENT DISORDER [None]
  - PROTEIN TOTAL DECREASED [None]
  - RHINITIS ALLERGIC [None]
  - RHINORRHOEA [None]
  - SEBORRHOEIC DERMATITIS [None]
  - SLEEP APNOEA SYNDROME [None]
  - SOMNOLENCE [None]
  - SUPRAVENTRICULAR TACHYCARDIA [None]
  - WEIGHT INCREASED [None]
